FAERS Safety Report 16403738 (Version 4)
Quarter: 2019Q3

REPORT INFORMATION
  Report Type: Spontaneous
  Country: JP (occurrence: JP)
  Receive Date: 20190607
  Receipt Date: 20190904
  Transmission Date: 20191004
  Serious: Yes (Other)
  Sender: FDA-Public Use
  Company Number: PHHY2019JP129786

PATIENT
  Age: 86 Year
  Sex: Female

DRUGS (4)
  1. RIVASTACH [Suspect]
     Active Substance: RIVASTIGMINE
     Indication: DEMENTIA ALZHEIMER^S TYPE
     Dosage: 1.9 MG QD (PATCH 2.5 (CM2), 4.5 MG RIVASTIGMINE BASE)
     Route: 062
     Dates: start: 20190220
  2. RIVASTACH [Suspect]
     Active Substance: RIVASTIGMINE
     Dosage: 6.9 MG QD (PATCH 7.5 (CM2), 13.5 MG RIVASTIGMINE BASE)
     Route: 062
  3. RIVASTACH [Suspect]
     Active Substance: RIVASTIGMINE
     Dosage: 9.5 MG QD (PATCH 10 (CM2), 18 MG RIVASTIGMINE BASE)
     Route: 062
     Dates: start: 20190527
  4. RIVASTACH [Suspect]
     Active Substance: RIVASTIGMINE
     Dosage: 9.5 MG QD (PATCH 10 (CM2), 18 MG RIVASTIGMINE BASE)
     Route: 062
     Dates: start: 20190520, end: 20190520

REACTIONS (5)
  - Vomiting [Recovering/Resolving]
  - Vomiting [Unknown]
  - Product prescribing error [Unknown]
  - Depressed level of consciousness [Unknown]
  - Gastrooesophageal reflux disease [Recovering/Resolving]

NARRATIVE: CASE EVENT DATE: 20190520
